FAERS Safety Report 6694929-1 (Version None)
Quarter: 2010Q2

REPORT INFORMATION
  Report Type: 
  Country: None (occurrence: None)
  Receive Date: 20100423
  Receipt Date: 20100412
  Transmission Date: 20101027
  Serious: No
  Sender: FDA-Public Use
  Company Number: US-ELI_LILLY_AND_COMPANY-US201004005002

PATIENT
  Age: 50 Year
  Sex: Male

DRUGS (2)
  1. CYMBALTA [Suspect]
     Dosage: 60 MG, UNK
  2. STATIN                             /00084401/ [Concomitant]

REACTIONS (1)
  - HEPATIC ENZYME INCREASED [None]
